FAERS Safety Report 25999534 (Version 1)
Quarter: 2025Q4

REPORT INFORMATION
  Report Type: Spontaneous
  Country: US (occurrence: US)
  Receive Date: 20251105
  Receipt Date: 20251105
  Transmission Date: 20260118
  Serious: No
  Sender: Tarsus Pharmaceuticals
  Company Number: US-TARSUS PHARMACEUTICALS-TSP-US-2025-000959

PATIENT

DRUGS (1)
  1. XDEMVY [Suspect]
     Active Substance: LOTILANER
     Indication: Product used for unknown indication
     Dosage: 1 DROP, BID (INSTILL 1 DROP TWICE A DAY EACH EYE FOR 6 WEEKS)
     Route: 047
     Dates: start: 20250811, end: 20250909

REACTIONS (4)
  - Product use issue [Unknown]
  - Product delivery mechanism issue [Unknown]
  - Device difficult to use [Unknown]
  - Therapy interrupted [Unknown]
